FAERS Safety Report 9258882 (Version 11)
Quarter: 2014Q1

REPORT INFORMATION
  Report Type: Spontaneous
  Country: US (occurrence: US)
  Receive Date: 20130426
  Receipt Date: 20140108
  Transmission Date: 20141002
  Serious: Yes (Death, Hospitalization)
  Sender: FDA-Public Use
  Company Number: US-GLAXOSMITHKLINE-A1021464A

PATIENT
  Age: 64 Year
  Sex: Female
  Weight: 111.4 kg

DRUGS (5)
  1. FLOLAN [Suspect]
     Indication: PULMONARY ARTERIAL HYPERTENSION
     Dosage: 78NGKM CONTINUOUS
     Route: 042
     Dates: start: 20040408
  2. VELETRI [Suspect]
     Indication: PULMONARY ARTERIAL HYPERTENSION
     Route: 042
     Dates: start: 201101, end: 201212
  3. REVATIO [Concomitant]
  4. LASIX [Concomitant]
  5. COUMADIN [Concomitant]

REACTIONS (20)
  - Death [Fatal]
  - Ascites [Not Recovered/Not Resolved]
  - Ascites [Not Recovered/Not Resolved]
  - Weight increased [Not Recovered/Not Resolved]
  - Chest pain [Recovered/Resolved]
  - Pancreatic cyst [Unknown]
  - Malaise [Unknown]
  - Device infusion issue [Unknown]
  - Investigation [Unknown]
  - Pancreatitis acute [Unknown]
  - Hypotension [Unknown]
  - Abdominal pain [Unknown]
  - Nausea [Unknown]
  - Vomiting [Unknown]
  - Diarrhoea [Unknown]
  - Atrial thrombosis [Unknown]
  - Urosepsis [Unknown]
  - Gastrointestinal haemorrhage [Unknown]
  - Hepatic cirrhosis [Unknown]
  - Thrombocytopenia [Unknown]
